FAERS Safety Report 13479070 (Version 4)
Quarter: 2018Q1

REPORT INFORMATION
  Report Type: Report from Study
  Country: US (occurrence: US)
  Receive Date: 20170424
  Receipt Date: 20180117
  Transmission Date: 20180508
  Serious: No
  Sender: FDA-Public Use
  Company Number: US-AMGEN-USASL2017034917

PATIENT
  Age: 64 Year
  Sex: Female

DRUGS (1)
  1. REPATHA [Suspect]
     Active Substance: EVOLOCUMAB
     Indication: BLOOD CHOLESTEROL INCREASED
     Dosage: 140 MG, TWICE MONTHLY
     Route: 065
     Dates: start: 2016

REACTIONS (4)
  - Hair disorder [Unknown]
  - Drug dose omission [Unknown]
  - Nail disorder [Unknown]
  - Muscle spasms [Not Recovered/Not Resolved]
